FAERS Safety Report 12593025 (Version 1)
Quarter: 2016Q3

REPORT INFORMATION
  Report Type: Spontaneous
  Country: US (occurrence: US)
  Receive Date: 20160726
  Receipt Date: 20160726
  Transmission Date: 20161109
  Serious: No
  Sender: FDA-Public Use
  Company Number: US-ABBVIE-15P-163-1518717-00

PATIENT
  Sex: Male
  Weight: 74.91 kg

DRUGS (2)
  1. SYNTHROID [Suspect]
     Active Substance: LEVOTHYROXINE SODIUM
     Indication: THYROID DISORDER
     Route: 048
     Dates: start: 2002, end: 2003
  2. SYNTHROID [Suspect]
     Active Substance: LEVOTHYROXINE SODIUM
     Indication: THYROID DISORDER
     Route: 048
     Dates: start: 2003, end: 201510

REACTIONS (6)
  - Loss of employment [Recovered/Resolved]
  - Panic attack [Recovered/Resolved]
  - Hypertension [Recovered/Resolved]
  - Anxiety [Recovered/Resolved]
  - Weight decreased [Recovered/Resolved]
  - Irritable bowel syndrome [Recovering/Resolving]

NARRATIVE: CASE EVENT DATE: 2002
